FAERS Safety Report 7964892-1 (Version None)
Quarter: 2011Q4

REPORT INFORMATION
  Report Type: 
  Country: None (occurrence: None)
  Receive Date: 20111208
  Receipt Date: 20111130
  Transmission Date: 20120403
  Serious: Yes (Hospitalization)
  Sender: FDA-Public Use
  Company Number: US-ABBOTT-11P-163-0880074-00

PATIENT
  Sex: Female

DRUGS (1)
  1. HUMIRA [Suspect]
     Indication: CROHN'S DISEASE
     Dates: start: 20080501

REACTIONS (4)
  - WEIGHT DECREASED [None]
  - VOMITING PROJECTILE [None]
  - INTESTINAL OBSTRUCTION [None]
  - GASTROINTESTINAL DISORDER [None]
